FAERS Safety Report 12498869 (Version 1)
Quarter: 2016Q2

REPORT INFORMATION
  Report Type: Spontaneous
  Country: GB (occurrence: GB)
  Receive Date: 20160627
  Receipt Date: 20160627
  Transmission Date: 20160815
  Serious: Yes (Other)
  Sender: FDA-Public Use
  Company Number: GB-009507513-1606GBR010656

PATIENT
  Age: 24 Year
  Sex: Female
  Weight: 77.56 kg

DRUGS (2)
  1. NEXPLANON [Suspect]
     Active Substance: ETONOGESTREL
     Indication: CONTRACEPTION
     Dosage: 68 MG, UNK
     Route: 059
     Dates: start: 20140813, end: 20160309
  2. CITALOPRAM [Suspect]
     Active Substance: CITALOPRAM HYDROBROMIDE
     Indication: ANXIETY
     Dosage: 20 MG, UNK
     Route: 048
     Dates: start: 20141101, end: 20160515

REACTIONS (4)
  - Vulvovaginal dryness [Recovering/Resolving]
  - Vaginal haemorrhage [Recovered/Resolved with Sequelae]
  - Depressed mood [Recovering/Resolving]
  - Anorgasmia [Recovered/Resolved]

NARRATIVE: CASE EVENT DATE: 20141104
